FAERS Safety Report 18513118 (Version 2)
Quarter: 2021Q1

REPORT INFORMATION
  Report Type: Report from Study
  Country: US (occurrence: US)
  Receive Date: 20201117
  Receipt Date: 20210112
  Transmission Date: 20210419
  Serious: Yes (Death, Hospitalization)
  Sender: FDA-Public Use
  Company Number: US-JNJFOC-20201102242

PATIENT
  Age: 81 Year
  Sex: Female
  Weight: 73 kg

DRUGS (4)
  1. CYCLOPHOSPHAMIDE. [Concomitant]
     Active Substance: CYCLOPHOSPHAMIDE
     Indication: AMYLOIDOSIS
     Dosage: MOST RECENT DOSE WAS PROVIDED ON 07?NOV?2019?DOSE WAS ALSO REPORTED AS 300 MG/M2
     Route: 048
     Dates: start: 20190531
  2. DEXAMETHASONE. [Concomitant]
     Active Substance: DEXAMETHASONE
     Indication: AMYLOIDOSIS
     Route: 048
     Dates: start: 20190531
  3. DARATUMUMAB [Suspect]
     Active Substance: DARATUMUMAB
     Indication: AMYLOIDOSIS
     Dosage: FREQUENCY OF EVERY 4 WEEKS
     Route: 058
     Dates: start: 20190531, end: 20201116
  4. BORTEZOMIB. [Concomitant]
     Active Substance: BORTEZOMIB
     Indication: AMYLOIDOSIS
     Route: 058
     Dates: start: 20190531

REACTIONS (2)
  - Acute kidney injury [Not Recovered/Not Resolved]
  - Failure to thrive [Fatal]

NARRATIVE: CASE EVENT DATE: 20201028
